FAERS Safety Report 4273632-1 (Version None)
Quarter: 2004Q1

REPORT INFORMATION
  Report Type: 
  Country: None (occurrence: None)
  Receive Date: 20040119
  Receipt Date: 20040114
  Transmission Date: 20041129
  Serious: Yes (Disabling)
  Sender: FDA-Public Use
  Company Number: WAES 0401USA01050

PATIENT
  Age: 77 Year
  Sex: Female

DRUGS (3)
  1. FOSAMAX [Suspect]
     Indication: OSTEOPOROSIS
     Route: 048
  2. LEVOXYL [Concomitant]
  3. TOPROL-XL [Concomitant]

REACTIONS (1)
  - DRY MOUTH [None]
